FAERS Safety Report 20168318 (Version 2)
Quarter: 2022Q2

REPORT INFORMATION
  Report Type: Spontaneous
  Country: PT (occurrence: PT)
  Receive Date: 20211210
  Receipt Date: 20220526
  Transmission Date: 20220720
  Serious: Yes (Hospitalization, Other)
  Sender: FDA-Public Use
  Company Number: PT-ALTER-2021000073

PATIENT
  Age: 64 Year
  Sex: Female

DRUGS (4)
  1. AMIODARONE [Suspect]
     Active Substance: AMIODARONE
     Indication: Atrial flutter
     Dosage: 100 MILLIGRAM, ONCE A DAY
     Route: 065
  2. AMIODARONE [Suspect]
     Active Substance: AMIODARONE
     Indication: Myocardial ischaemia
  3. PREDNISOLONE [Suspect]
     Active Substance: PREDNISOLONE
     Indication: Hyperthyroidism
     Dosage: 40 MILLIGRAM, ONCE A DAY
     Route: 065
  4. METHIMAZOLE [Suspect]
     Active Substance: METHIMAZOLE
     Indication: Hyperthyroidism
     Dosage: 5 MILLIGRAM, ONCE A DAY
     Route: 065

REACTIONS (7)
  - Delirium [Recovered/Resolved]
  - Aggression [Recovered/Resolved]
  - Disturbance in attention [Recovered/Resolved]
  - Hyperthyroidism [Recovered/Resolved]
  - Speech disorder [Recovered/Resolved]
  - Psychomotor hyperactivity [Recovered/Resolved]
  - Off label use [Recovered/Resolved]
